FAERS Safety Report 5324361-4 (Version None)
Quarter: 2007Q2

REPORT INFORMATION
  Report Type: 
  Country: None (occurrence: None)
  Receive Date: 20070509
  Receipt Date: 20070424
  Transmission Date: 20071010
  Serious: Yes (Death, Hospitalization)
  Sender: FDA-Public Use
  Company Number: S07-FRA-01742-01

PATIENT
  Age: 77 Year
  Sex: Male

DRUGS (7)
  1. CITALOPRAM HYDROBROMIDE [Suspect]
     Dates: start: 20070305, end: 20070307
  2. CHAMPIX (VARENICLINE) [Suspect]
     Dosage: 0.5 MG BID PO
     Route: 048
     Dates: start: 20070305, end: 20070307
  3. RAMIPRIL [Concomitant]
  4. PRAVASTATIN [Concomitant]
  5. DIGOXIN [Concomitant]
  6. BISOPROLOL FUMARATE [Concomitant]
  7. KARDEGIC (ACETYLSALICYLATE LYSINE) [Concomitant]

REACTIONS (17)
  - ANOREXIA [None]
  - ANOXIA [None]
  - ARTHROPATHY [None]
  - BACK PAIN [None]
  - BLOOD LACTIC ACID INCREASED [None]
  - CREATININE RENAL CLEARANCE DECREASED [None]
  - DIARRHOEA [None]
  - ELECTROMECHANICAL DISSOCIATION [None]
  - INTESTINAL ISCHAEMIA [None]
  - ISCHAEMIA [None]
  - LOSS OF CONSCIOUSNESS [None]
  - MALAISE [None]
  - NAUSEA [None]
  - ORTHOSTATIC HYPOTENSION [None]
  - SHOCK [None]
  - SYNCOPE VASOVAGAL [None]
  - WHITE BLOOD CELL COUNT INCREASED [None]
